FAERS Safety Report 6656427-0 (Version None)
Quarter: 2010Q1

REPORT INFORMATION
  Report Type: 
  Country: None (occurrence: None)
  Receive Date: 20100326
  Receipt Date: 20100326
  Transmission Date: 20100710
  Serious: Yes (Hospitalization)
  Sender: FDA-Public Use
  Company Number: None

PATIENT
  Sex: Female
  Weight: 55.2 kg

DRUGS (2)
  1. TEMOZOLOMIDE [Suspect]
     Indication: ACUTE MYELOID LEUKAEMIA
     Dosage: 100 MG/M2 QD PO
     Route: 048
     Dates: start: 20090828, end: 20090910
  2. TEMOZOLOMIDE [Suspect]
     Dosage: 200 MG/M2 QD PO
     Route: 048
     Dates: start: 20090911, end: 20090911

REACTIONS (2)
  - FEBRILE NEUTROPENIA [None]
  - PETECHIAE [None]
